FAERS Safety Report 7357717-9 (Version None)
Quarter: 2011Q1

REPORT INFORMATION
  Report Type: 
  Country: None (occurrence: None)
  Receive Date: 20110317
  Receipt Date: 20110308
  Transmission Date: 20110831
  Serious: Yes (Death, Life-Threatening, Hospitalization)
  Sender: FDA-Public Use
  Company Number: DE-JNJFOC-980416-003011296

PATIENT
  Age: 87 Year
  Sex: Male

DRUGS (8)
  1. TRAMADOL HCL [Suspect]
     Route: 041
     Dates: start: 19971023
  2. GLUCOSE 30% [Concomitant]
     Indication: HYPOGLYCAEMIA
     Route: 041
     Dates: start: 19971024
  3. TRAMADOL HCL [Suspect]
     Indication: ARTHRALGIA
     Route: 041
     Dates: start: 19971023
  4. NALOXONE HYDROCHLORIDE [Concomitant]
     Route: 041
     Dates: start: 19971024, end: 19971024
  5. TRAMADOL HCL [Suspect]
     Route: 041
     Dates: start: 19971023
  6. MIDAZOLAM HYDROCHLORIDE [Concomitant]
     Indication: CONVULSION
     Route: 041
     Dates: start: 19971024, end: 19971024
  7. CLONAZEPAM [Concomitant]
     Indication: CONVULSION
     Route: 041
     Dates: start: 19971024
  8. PREDNISONE [Concomitant]
     Route: 065

REACTIONS (6)
  - GRAND MAL CONVULSION [None]
  - MIOSIS [None]
  - CARDIAC ARREST [None]
  - RESPIRATORY ARREST [None]
  - HYPOGLYCAEMIA [None]
  - RESPIRATORY DISTRESS [None]
